FAERS Safety Report 4893416-0 (Version None)
Quarter: 2006Q1

REPORT INFORMATION
  Report Type: 
  Country: None (occurrence: None)
  Receive Date: 20060127
  Receipt Date: 20051108
  Transmission Date: 20060701
  Serious: Yes (Hospitalization)
  Sender: FDA-Public Use
  Company Number: PHBS2005JP16554

PATIENT
  Age: 79 Year
  Sex: Female

DRUGS (4)
  1. LAMISIL [Suspect]
     Indication: NAIL TINEA
     Dosage: 125 MG, QD
     Route: 048
     Dates: start: 20050523, end: 20051021
  2. TALION [Concomitant]
     Indication: ECZEMA
     Dosage: UNK, UNK
     Route: 048
     Dates: start: 20050516, end: 20051015
  3. MYSER [Concomitant]
     Indication: ECZEMA
     Route: 061
  4. AMLODIN [Concomitant]
     Indication: HYPERTENSION
     Route: 048

REACTIONS (6)
  - BLISTER [None]
  - ERYTHEMA [None]
  - NEUTROPHIL PERCENTAGE INCREASED [None]
  - OEDEMA PERIPHERAL [None]
  - PEMPHIGOID [None]
  - WHITE BLOOD CELL COUNT INCREASED [None]
